FAERS Safety Report 10952590 (Version 1)
Quarter: 2015Q1

REPORT INFORMATION
  Report Type: Spontaneous
  Country: US (occurrence: None)
  Receive Date: 20150323
  Receipt Date: 20150323
  Transmission Date: 20150721
  Serious: No
  Sender: FDA-Public Use
  Company Number: VIT-2014-02719

PATIENT
  Age: 37 Year
  Sex: Male
  Weight: 128 kg

DRUGS (5)
  1. LISINOPRIL. [Concomitant]
     Active Substance: LISINOPRIL
  2. VELPHORO [Suspect]
     Active Substance: FERRIC OXYHYDROXIDE
     Indication: HYPERPHOSPHATAEMIA
     Route: 048
     Dates: start: 20140830, end: 20141202
  3. HYDROCHLOROTHIAZIDE. [Concomitant]
     Active Substance: HYDROCHLOROTHIAZIDE
  4. TUMS ULTRA (CALCIUM CARBONATE) [Concomitant]
  5. METOPROLOL [Concomitant]
     Active Substance: METOPROLOL

REACTIONS (4)
  - Oral mucosal discolouration [None]
  - No therapeutic response [None]
  - Saliva discolouration [None]
  - Dysgeusia [None]

NARRATIVE: CASE EVENT DATE: 20140830
